FAERS Safety Report 9037101 (Version 1)
Quarter: 2013Q1

REPORT INFORMATION
  Report Type: Spontaneous
  Country: US (occurrence: US)
  Receive Date: 20130129
  Receipt Date: 20130129
  Transmission Date: 20140127
  Serious: Yes (Other)
  Sender: FDA-Public Use
  Company Number: US-009507513-1301USA010496

PATIENT
  Sex: Female

DRUGS (4)
  1. PEGINTRON [Suspect]
     Indication: HEPATITIS C
     Dosage: UNK
     Dates: start: 20130104
  2. RIBAVIRIN [Suspect]
     Indication: HEPATITIS C
     Dosage: UNK
     Route: 048
     Dates: start: 20130105
  3. TELAPREVIR [Suspect]
     Indication: HEPATITIS C
     Dosage: UNK
     Dates: start: 20130105
  4. LITHIUM [Concomitant]
     Indication: DEPRESSION
     Dosage: UNK

REACTIONS (7)
  - Suicidal ideation [Unknown]
  - Injection site reaction [Unknown]
  - Influenza like illness [Unknown]
  - Memory impairment [Unknown]
  - Somnolence [Unknown]
  - Needle issue [Unknown]
  - Drug dose omission [Unknown]
